FAERS Safety Report 7247433-6 (Version None)
Quarter: 2011Q1

REPORT INFORMATION
  Report Type: 
  Country: None (occurrence: None)
  Receive Date: 20110127
  Receipt Date: 20110121
  Transmission Date: 20110831
  Serious: Yes (Death, Other)
  Sender: FDA-Public Use
  Company Number: PHHY2010US66347

PATIENT
  Sex: Female
  Weight: 52.6 kg

DRUGS (7)
  1. EXELON [Concomitant]
     Indication: DEPRESSION
     Dosage: 6 MG, BID
     Route: 048
     Dates: end: 20100704
  2. SEROQUEL [Concomitant]
     Dosage: 25 MG, BID
  3. FLORINEF [Concomitant]
     Indication: ORTHOSTATIC HYPOTENSION
     Dosage: 0.1 MG, UNK
     Route: 048
     Dates: end: 20100407
  4. CLOZARIL [Suspect]
     Indication: PSYCHOTIC DISORDER
     Dosage: 37.5 MG, QD
     Route: 048
  5. NAMONATE [Concomitant]
     Indication: DEPRESSION
     Dosage: 10 MG, BID
     Route: 048
     Dates: end: 20100704
  6. RIVASTIGMINE [Concomitant]
     Indication: DEPRESSION
     Dosage: 30 MG, QHS
     Route: 048
     Dates: end: 20100704
  7. AMANTADINE HCL [Concomitant]
     Indication: DEPRESSION

REACTIONS (5)
  - DEMENTIA WITH LEWY BODIES [None]
  - CYANOSIS [None]
  - SOMNOLENCE [None]
  - ASPIRATION [None]
  - PARKINSON'S DISEASE [None]
